FAERS Safety Report 4544782-7 (Version None)
Quarter: 2005Q1

REPORT INFORMATION
  Report Type: 
  Country: None (occurrence: None)
  Receive Date: 20050105
  Receipt Date: 20031021
  Transmission Date: 20050727
  Serious: Yes (Hospitalization)
  Sender: FDA-Public Use
  Company Number: CA-ROCHE-349609

PATIENT
  Age: 53 Year
  Sex: Male
  Weight: 72.6 kg

DRUGS (4)
  1. PEG-INTERFERON ALFA 2A (RO 25-8310) [Suspect]
     Route: 058
     Dates: start: 20030529, end: 20031009
  2. RIBAVIRIN [Suspect]
     Route: 048
     Dates: start: 20030529, end: 20031012
  3. VASOTEC [Concomitant]
     Dates: end: 20031016
  4. IMOVANE [Concomitant]
     Dates: end: 20031009

REACTIONS (13)
  - ALANINE AMINOTRANSFERASE INCREASED [None]
  - AMMONIA INCREASED [None]
  - ASPARTATE AMINOTRANSFERASE INCREASED [None]
  - BLOOD BILIRUBIN INCREASED [None]
  - DECREASED APPETITE [None]
  - DEHYDRATION [None]
  - MALAISE [None]
  - NAUSEA [None]
  - NEUROGENIC BLADDER [None]
  - PANCYTOPENIA [None]
  - PLATELET COUNT DECREASED [None]
  - VOMITING [None]
  - WEIGHT DECREASED [None]
